FAERS Safety Report 5233858-7 (Version None)
Quarter: 2007Q1

REPORT INFORMATION
  Report Type: 
  Country: None (occurrence: None)
  Receive Date: 20070208
  Receipt Date: 20070206
  Transmission Date: 20070707
  Serious: Yes (Life-Threatening, Hospitalization, Disabling, Other)
  Sender: FDA-Public Use
  Company Number: GB-BRISTOL-MYERS SQUIBB COMPANY-13599766

PATIENT
  Age: 37 Year
  Sex: Male

DRUGS (4)
  1. SUSTIVA [Suspect]
     Indication: HIV INFECTION
     Dosage: STOPPED IN NOV-2006 AND RESTARTED ON 30-NOV-2006
     Route: 048
     Dates: start: 20060919, end: 20061114
  2. COMBIVIR [Concomitant]
     Dosage: ZIDOVUDINE 300 MG/LAMIVUDINE 150 MG 1 TAB X 2/DAY
     Route: 048
     Dates: start: 20020701, end: 20060919
  3. LOPINAVIR + RITONAVIR [Concomitant]
     Route: 048
     Dates: start: 20020701, end: 20060919
  4. KIVEXA [Concomitant]
     Dosage: ABACAVIR 600 MG/LAMIVUDINE 300 MG 1 TAB DAILY
     Route: 048
     Dates: start: 20060919, end: 20061114

REACTIONS (6)
  - BALANCE DISORDER [None]
  - CENTRAL NERVOUS SYSTEM LYMPHOMA [None]
  - CONFUSIONAL STATE [None]
  - DIZZINESS [None]
  - DRUG LEVEL DECREASED [None]
  - HEMIPLEGIA [None]
